FAERS Safety Report 9651477 (Version 1)
Quarter: 2013Q4

REPORT INFORMATION
  Report Type: Spontaneous
  Country: HR (occurrence: HR)
  Receive Date: 20131029
  Receipt Date: 20131029
  Transmission Date: 20140711
  Serious: Yes (Other)
  Sender: FDA-Public Use
  Company Number: HR-ROCHE-1291941

PATIENT
  Age: 58 Year
  Sex: Male
  Weight: 90 kg

DRUGS (11)
  1. CELLCEPT [Suspect]
     Indication: PROPHYLAXIS
     Route: 048
     Dates: start: 20130809
  2. CYMEVENE [Interacting]
     Indication: PROPHYLAXIS
     Route: 041
     Dates: start: 20130809, end: 20130827
  3. SINERSUL [Interacting]
     Indication: PROPHYLAXIS
     Route: 048
     Dates: start: 20130809
  4. PROGRAF [Concomitant]
     Route: 048
     Dates: start: 20130809
  5. DECORTIN [Concomitant]
     Route: 048
  6. FOLACIN [Concomitant]
     Route: 048
  7. MICONAZOLUM [Concomitant]
     Route: 065
  8. CONTROLOC (CROATIA) [Concomitant]
     Route: 065
  9. COLECALCIFEROL [Concomitant]
     Route: 048
  10. CALCIUM CARBONATE [Concomitant]
     Route: 065
  11. ROCEPHIN [Concomitant]
     Route: 065

REACTIONS (6)
  - Anaemia [Recovered/Resolved]
  - Thrombocytopenia [Recovered/Resolved]
  - Haemorrhagic diathesis [Recovered/Resolved]
  - Haematuria [Recovered/Resolved]
  - Subcutaneous haematoma [Recovered/Resolved]
  - Drug interaction [Unknown]
